FAERS Safety Report 18667254 (Version 2)
Quarter: 2021Q1

REPORT INFORMATION
  Report Type: Report from Study
  Country: US (occurrence: US)
  Receive Date: 20201228
  Receipt Date: 20210325
  Transmission Date: 20210419
  Serious: No
  Sender: FDA-Public Use
  Company Number: NVSC2020US336997

PATIENT
  Sex: Female

DRUGS (1)
  1. MAYZENT [Suspect]
     Active Substance: SIPONIMOD
     Indication: MULTIPLE SCLEROSIS
     Dosage: 2 MG, QD
     Route: 048

REACTIONS (10)
  - Pain [Unknown]
  - Fatigue [Unknown]
  - COVID-19 [Unknown]
  - Decreased immune responsiveness [Unknown]
  - Pruritus [Recovered/Resolved]
  - Headache [Unknown]
  - Sinusitis [Unknown]
  - Alopecia [Recovered/Resolved]
  - Cough [Unknown]
  - Nasopharyngitis [Unknown]
